FAERS Safety Report 20260692 (Version 2)
Quarter: 2022Q1

REPORT INFORMATION
  Report Type: Report from Study
  Country: CA (occurrence: CA)
  Receive Date: 20211230
  Receipt Date: 20220128
  Transmission Date: 20220423
  Serious: Yes (Other)
  Sender: FDA-Public Use
  Company Number: CA-ABBVIE-21K-028-4216979-00

PATIENT
  Age: 87 Year
  Sex: Male

DRUGS (1)
  1. LUPRON DEPOT [Suspect]
     Active Substance: LEUPROLIDE ACETATE
     Indication: Prostate cancer
     Route: 030
     Dates: start: 20200428

REACTIONS (2)
  - Intervertebral disc protrusion [Recovering/Resolving]
  - Stress fracture [Unknown]

NARRATIVE: CASE EVENT DATE: 20211111
